FAERS Safety Report 8789939 (Version 1)
Quarter: 2012Q4

REPORT INFORMATION
  Report Type: 
  Country: US (occurrence: US)
  Receive Date: 20120914
  Receipt Date: 20120914
  Transmission Date: 20130627
  Serious: Yes (Hospitalization, Other)
  Sender: FDA-Public Use
  Company Number: US-ELI_LILLY_AND_COMPANY-US201209001792

PATIENT
  Age: 64 None
  Sex: Female

DRUGS (4)
  1. HUMALOG LISPRO [Suspect]
     Indication: TYPE 2 DIABETES MELLITUS
     Dosage: UNK UNK, prn
     Dates: start: 2011
  2. LEVEMIR [Concomitant]
  3. PREDNISONE [Interacting]
     Dosage: 5 mg, UNK
  4. FUROSEMIDE [Concomitant]

REACTIONS (6)
  - Cardiac failure congestive [Unknown]
  - Dyspnoea [Unknown]
  - Hyperglycaemia [Unknown]
  - Muscle spasms [Unknown]
  - Drug interaction [Unknown]
  - Blood glucose decreased [Unknown]
